FAERS Safety Report 6581527-3 (Version None)
Quarter: 2010Q1

REPORT INFORMATION
  Report Type: 
  Country: None (occurrence: None)
  Receive Date: 20100215
  Receipt Date: 20100208
  Transmission Date: 20100710
  Serious: Yes (Hospitalization)
  Sender: FDA-Public Use
  Company Number: US-MERCK-1002USA01287

PATIENT
  Sex: Female

DRUGS (2)
  1. PRINIVIL [Suspect]
     Indication: HYPERTENSION
     Route: 048
     Dates: end: 20090101
  2. LISINOPRIL [Suspect]
     Indication: HYPERTENSION
     Route: 065
     Dates: start: 20090101

REACTIONS (3)
  - DRUG HYPERSENSITIVITY [None]
  - FEELING HOT [None]
  - HYPERTENSION [None]
